FAERS Safety Report 8822486 (Version 1)
Quarter: 2012Q4

REPORT INFORMATION
  Report Type: 
  Country: JP (occurrence: JP)
  Receive Date: 20121003
  Receipt Date: 20121003
  Transmission Date: 20130627
  Serious: Yes (Hospitalization)
  Sender: FDA-Public Use
  Company Number: JP-SANOFI-AVENTIS-2012SA071482

PATIENT
  Age: 70 Year
  Sex: Male

DRUGS (3)
  1. ELPLAT [Suspect]
     Indication: COLON CANCER
     Route: 041
     Dates: end: 20120814
  2. AVASTIN [Suspect]
     Indication: COLON CANCER
     Route: 041
     Dates: end: 20120814
  3. XELODA [Concomitant]

REACTIONS (4)
  - Depressed level of consciousness [Recovered/Resolved]
  - Blood pressure decreased [Recovered/Resolved]
  - Feeling abnormal [Unknown]
  - Throat tightness [Unknown]
